FAERS Safety Report 7865803 (Version 4)
Quarter: 2014Q1

REPORT INFORMATION
  Report Type: Spontaneous
  Country: DK (occurrence: DK)
  Receive Date: 20110322
  Receipt Date: 20140218
  Transmission Date: 20141002
  Serious: Yes (Other)
  Sender: FDA-Public Use
  Company Number: DK-TEVA-271513ISR

PATIENT
  Age: 49 Year
  Sex: Male
  Weight: 85 kg

DRUGS (3)
  1. LAMOTRIGINE [Suspect]
     Indication: EPILEPSY
     Dosage: STRENGTH: 100 MG.
     Dates: start: 2005
  2. LAMOTRIGINE [Suspect]
     Dosage: DOSAGE WERE REDUCED TO 150+0+100 MG DAILY
     Dates: start: 20091214
  3. FELODIPINE [Concomitant]
     Indication: HYPERTENSION
     Dates: start: 1994

REACTIONS (5)
  - Chronic obstructive pulmonary disease [Unknown]
  - Diarrhoea [Unknown]
  - Somnolence [Unknown]
  - Dyspnoea [Unknown]
  - Lethargy [Unknown]
